FAERS Safety Report 5695370-0 (Version None)
Quarter: 2008Q2

REPORT INFORMATION
  Report Type: 
  Country: None (occurrence: None)
  Receive Date: 20080403
  Receipt Date: 20080324
  Transmission Date: 20081010
  Serious: Yes (Hospitalization)
  Sender: FDA-Public Use
  Company Number: 20084955

PATIENT
  Age: 47 Year
  Sex: Male
  Weight: 99.7913 kg

DRUGS (10)
  1. LIORESAL [Suspect]
     Indication: MUSCLE SPASTICITY
     Dosage: DAILY, INTRATHECAL
     Route: 037
  2. ORAL BACLOFEN [Concomitant]
  3. REBIF [Concomitant]
  4. LEXAPRO [Concomitant]
  5. NAPROXEN [Concomitant]
  6. METOPROLOL [Concomitant]
  7. SPIRONOLACTONE [Concomitant]
  8. OXYBUTININ [Concomitant]
  9. CARDURA [Concomitant]
  10. LORAZEPAM [Concomitant]

REACTIONS (5)
  - CHEST DISCOMFORT [None]
  - CONVULSION [None]
  - MEDICAL DEVICE COMPLICATION [None]
  - OVERDOSE [None]
  - PARALYSIS [None]
